FAERS Safety Report 10010938 (Version 2)
Quarter: 2014Q1

REPORT INFORMATION
  Report Type: Report from Study
  Country: US (occurrence: US)
  Receive Date: 20140314
  Receipt Date: 20140321
  Transmission Date: 20141002
  Serious: Yes (Other)
  Sender: FDA-Public Use
  Company Number: US-ROCHE-1361093

PATIENT
  Age: 54 Year
  Sex: Female

DRUGS (5)
  1. HERCEPTIN [Suspect]
     Indication: BREAST CANCER METASTATIC
     Dosage: 1L
     Route: 065
  2. PERJETA [Suspect]
     Indication: BREAST CANCER METASTATIC
     Dosage: 1L
     Route: 065
  3. KADCYLA [Suspect]
     Indication: BREAST CANCER METASTATIC
     Dosage: 2L
     Route: 065
  4. TAXOTERE [Concomitant]
     Dosage: 1L
     Route: 065
  5. TAXOL [Concomitant]
     Dosage: 1L/ADJUVANT
     Route: 065

REACTIONS (1)
  - Febrile neutropenia [Unknown]
